FAERS Safety Report 7435242-4 (Version None)
Quarter: 2011Q2

REPORT INFORMATION
  Report Type: 
  Country: None (occurrence: None)
  Receive Date: 20110415
  Receipt Date: 20110407
  Transmission Date: 20111010
  Serious: Yes (Death, Life-Threatening, Hospitalization, Other)
  Sender: FDA-Public Use
  Company Number: 2011SP006840

PATIENT
  Age: 59 Year
  Sex: Male

DRUGS (6)
  1. ALPRAZOLAM [Concomitant]
  2. BENDROFLUMETHIAZIDE [Concomitant]
  3. AMITRIPTYLINE HCL [Suspect]
     Indication: PRODUCT USED FOR UNKNOWN INDICATION
     Dosage: 125 MG;QD
  4. ATENOLOL [Concomitant]
  5. MIRTAZAPINE [Suspect]
     Indication: PRODUCT USED FOR UNKNOWN INDICATION
     Dosage: 60 MG;QD
  6. ISOSORBIDE MONONITRATE [Concomitant]

REACTIONS (16)
  - SEROTONIN SYNDROME [None]
  - MYALGIA [None]
  - DISSEMINATED INTRAVASCULAR COAGULATION [None]
  - FATIGUE [None]
  - CEREBELLAR ATROPHY [None]
  - DRUG INTERACTION [None]
  - HEADACHE [None]
  - DEPRESSED LEVEL OF CONSCIOUSNESS [None]
  - TOXICITY TO VARIOUS AGENTS [None]
  - MULTI-ORGAN FAILURE [None]
  - MULTIPLE DRUG OVERDOSE [None]
  - HEPATIC ENZYME INCREASED [None]
  - INTESTINAL DILATATION [None]
  - AGITATION [None]
  - DYSSTASIA [None]
  - METABOLIC ACIDOSIS [None]
